FAERS Safety Report 5763226-0 (Version None)
Quarter: 2008Q2

REPORT INFORMATION
  Report Type: 
  Country: None (occurrence: None)
  Receive Date: 20080604
  Receipt Date: 20080515
  Transmission Date: 20081010
  Serious: Yes (Other)
  Sender: FDA-Public Use
  Company Number: ISPH-2008-0102

PATIENT
  Sex: Male

DRUGS (1)
  1. AZASITE [Suspect]
     Indication: ANTIBIOTIC PROPHYLAXIS

REACTIONS (1)
  - TOXIC ANTERIOR SEGMENT SYNDROME [None]
